FAERS Safety Report 20461112 (Version 3)
Quarter: 2022Q1

REPORT INFORMATION
  Report Type: Report from Study
  Country: US (occurrence: US)
  Receive Date: 20220211
  Receipt Date: 20220214
  Transmission Date: 20220423
  Serious: Yes (Other)
  Sender: FDA-Public Use
  Company Number: US-HRARD-2021000034

PATIENT
  Age: 44 Year
  Sex: Female

DRUGS (3)
  1. LYSODREN [Suspect]
     Active Substance: MITOTANE
     Route: 048
     Dates: start: 20201012
  2. LYSODREN [Suspect]
     Active Substance: MITOTANE
     Dosage: DAILY DOSE: 03 TABLETS IN THE MORNING AND 04 TABLETS IN THE EVENING
     Route: 048
     Dates: end: 2021
  3. A-HYDROCORT [Concomitant]
     Active Substance: HYDROCORTISONE SODIUM SUCCINATE

REACTIONS (1)
  - Liver injury [Not Recovered/Not Resolved]

NARRATIVE: CASE EVENT DATE: 20210107
